FAERS Safety Report 8935469 (Version 1)
Quarter: 2012Q4

REPORT INFORMATION
  Report Type: Spontaneous
  Country: US (occurrence: None)
  Receive Date: 20121128
  Receipt Date: 20121128
  Transmission Date: 20130627
  Serious: Yes (Hospitalization)
  Sender: FDA-Public Use
  Company Number: None

PATIENT
  Age: 64 Year
  Sex: Male
  Weight: 154.5 kg

DRUGS (2)
  1. ACETAMINOPHEN, ASPIRIN AND CAFFEINE [Suspect]
     Indication: PAIN
     Dosage: 1-2 times daily. 
chronic
     Route: 048
  2. GABAPENTIN [Concomitant]

REACTIONS (3)
  - Anaemia [None]
  - Oesophageal dilatation [None]
  - Gastrointestinal ulcer [None]
